FAERS Safety Report 10934875 (Version 1)
Quarter: 2015Q1

REPORT INFORMATION
  Report Type: Spontaneous
  Country: BR (occurrence: BR)
  Receive Date: 20150320
  Receipt Date: 20150320
  Transmission Date: 20150721
  Serious: Yes (Other)
  Sender: FDA-Public Use
  Company Number: BR-009507513-1503BRA008741

PATIENT
  Age: 46 Year
  Sex: Female
  Weight: 58 kg

DRUGS (1)
  1. AVOBENZONE (+) HOMOSALATE (+) OCTISALATE (+) OCTOCRYLENE (+) OXYBENZON [Suspect]
     Active Substance: OCTINOXATE\OCTOCRYLENE
     Indication: PROPHYLAXIS
     Dosage: DOSE: UNKNOWN, FREQUENCY: PRN (AS NEEDED)
     Route: 061
     Dates: start: 2015

REACTIONS (5)
  - Blindness transient [Recovered/Resolved]
  - Product physical consistency issue [Unknown]
  - Eye irritation [Recovered/Resolved]
  - Lacrimation increased [Recovered/Resolved]
  - Ocular hyperaemia [Recovered/Resolved]

NARRATIVE: CASE EVENT DATE: 2015
